FAERS Safety Report 8123466-2 (Version None)
Quarter: 2012Q1

REPORT INFORMATION
  Report Type: 
  Country: None (occurrence: None)
  Receive Date: 20120208
  Receipt Date: 20120131
  Transmission Date: 20120608
  Serious: No
  Sender: FDA-Public Use
  Company Number: PHHY2012DE004685

PATIENT
  Age: 68 Year
  Sex: Female
  Weight: 60 kg

DRUGS (2)
  1. RASILEZ HCT [Suspect]
  2. ATACAND HCT [Suspect]

REACTIONS (5)
  - GLOSSODYNIA [None]
  - SWOLLEN TONGUE [None]
  - TONGUE INJURY [None]
  - CANDIDIASIS [None]
  - THROAT IRRITATION [None]
